FAERS Safety Report 11287698 (Version 1)
Quarter: 2015Q3

REPORT INFORMATION
  Report Type: Spontaneous
  Country: US (occurrence: None)
  Receive Date: 20150720
  Receipt Date: 20150720
  Transmission Date: 20151125
  Serious: Yes (Disabling)
  Sender: FDA-Public Use
  Company Number: None

PATIENT
  Age: 50 Year
  Sex: Male
  Weight: 85.28 kg

DRUGS (1)
  1. CIPROFLOXACIN 500 [Suspect]
     Active Substance: CIPROFLOXACIN
     Indication: GASTROINTESTINAL BACTERIAL INFECTION
     Dosage: 1 PILL
     Route: 048
     Dates: start: 20130422, end: 20130429

REACTIONS (2)
  - Diplopia [None]
  - Photosensitivity reaction [None]

NARRATIVE: CASE EVENT DATE: 20130422
